FAERS Safety Report 18225342 (Version 1)
Quarter: 2020Q3

REPORT INFORMATION
  Report Type: Spontaneous
  Country: TH (occurrence: TH)
  Receive Date: 20200903
  Receipt Date: 20200903
  Transmission Date: 20201103
  Serious: No
  Sender: FDA-Public Use
  Company Number: TH-LUPIN PHARMACEUTICALS INC.-2020-03964

PATIENT
  Age: 11 Year
  Sex: Male

DRUGS (2)
  1. BUDESONIDE. [Suspect]
     Active Substance: BUDESONIDE
     Indication: SINUSITIS
     Dosage: 1 MILLIGRAM, QD (1 MG IN NORMAL SALINE 250 ML NASAL IRRIGATION)
     Route: 045
  2. NORMAL SALINE [Suspect]
     Active Substance: SODIUM CHLORIDE
     Indication: SINUSITIS
     Dosage: 250 MILLILITER, QD (BUDESONIDE (1 MG) IN NORMAL SALINE 250 ML NASAL IRRIGATION)
     Route: 045

REACTIONS (1)
  - Treatment failure [Unknown]
